FAERS Safety Report 25334147 (Version 2)
Quarter: 2025Q3

REPORT INFORMATION
  Report Type: Spontaneous
  Country: EU (occurrence: EU)
  Receive Date: 20250520
  Receipt Date: 20250703
  Transmission Date: 20251020
  Serious: Yes (Other)
  Sender: JOHNSON AND JOHNSON
  Company Number: EU-BAYER-2025A064543

PATIENT
  Age: 57 Year
  Sex: Female

DRUGS (6)
  1. RIVAROXABAN [Interacting]
     Active Substance: RIVAROXABAN
     Indication: Product used for unknown indication
     Dosage: 20 MG, QD
     Route: 048
  2. CLARITHROMYCIN [Interacting]
     Active Substance: CLARITHROMYCIN
     Indication: Respiratory tract infection
     Dosage: 500 MG, BID
     Route: 065
  3. PROPAFENONE [Concomitant]
     Active Substance: PROPAFENONE
     Indication: Product used for unknown indication
  4. BISOPROLOL [Concomitant]
     Active Substance: BISOPROLOL
     Indication: Product used for unknown indication
  5. SERTRALINE [Concomitant]
     Active Substance: SERTRALINE HYDROCHLORIDE
     Indication: Product used for unknown indication
  6. GINKGO [Concomitant]
     Active Substance: GINKGO
     Indication: Product used for unknown indication

REACTIONS (2)
  - Central nervous system haemorrhage [Unknown]
  - Drug interaction [Unknown]
